FAERS Safety Report 5355164-2 (Version None)
Quarter: 2007Q2

REPORT INFORMATION
  Report Type: 
  Country: None (occurrence: None)
  Receive Date: 20070611
  Receipt Date: 20070525
  Transmission Date: 20071010
  Serious: Yes (Hospitalization)
  Sender: FDA-Public Use
  Company Number: 002#2#2007-00087

PATIENT
  Sex: Female

DRUGS (1)
  1. GLYCOLAX [Suspect]
     Indication: DRUG USE FOR UNKNOWN INDICATION
     Dosage: DF

REACTIONS (5)
  - CHILLS [None]
  - DEHYDRATION [None]
  - MALAISE [None]
  - PYREXIA [None]
  - REACTION TO DRUG EXCIPIENTS [None]
